FAERS Safety Report 8050844-2 (Version None)
Quarter: 2012Q1

REPORT INFORMATION
  Report Type: 
  Country: None (occurrence: None)
  Receive Date: 20120117
  Receipt Date: 20120103
  Transmission Date: 20120608
  Serious: Yes (Other)
  Sender: FDA-Public Use
  Company Number: PHFR2011IE006629

PATIENT
  Sex: Male

DRUGS (3)
  1. CLOZARIL [Suspect]
     Dosage: 300 MG
     Route: 048
     Dates: start: 20111114
  2. CLOZARIL [Suspect]
     Indication: SCHIZOPHRENIA
     Route: 048
     Dates: start: 20111027
  3. RISPERIDONE [Concomitant]
     Dosage: 2 MG, UNK
     Route: 048
     Dates: start: 20111104

REACTIONS (3)
  - EOSINOPHIL COUNT INCREASED [None]
  - INFLUENZA LIKE ILLNESS [None]
  - UPPER RESPIRATORY TRACT INFECTION [None]
